FAERS Safety Report 4532408-8 (Version None)
Quarter: 2004Q4

REPORT INFORMATION
  Report Type: 
  Country: None (occurrence: None)
  Receive Date: 20041217
  Receipt Date: 20041201
  Transmission Date: 20050328
  Serious: Yes (Other)
  Sender: FDA-Public Use
  Company Number: PHEH2004US12923

PATIENT

DRUGS (1)
  1. VISUDYNE [Suspect]

REACTIONS (3)
  - INJECTION SITE EXTRAVASATION [None]
  - NECROSIS [None]
  - SOFT TISSUE DISORDER [None]
